FAERS Safety Report 5127180-7 (Version None)
Quarter: 2006Q4

REPORT INFORMATION
  Report Type: 
  Country: None (occurrence: None)
  Receive Date: 20061013
  Receipt Date: 20060928
  Transmission Date: 20070319
  Serious: Yes (Other)
  Sender: FDA-Public Use
  Company Number: US-JNJFOC-20060307879

PATIENT
  Sex: Female
  Weight: 68.49 kg

DRUGS (4)
  1. ORTHO EVRA [Suspect]
     Indication: CONTRACEPTION
     Route: 062
     Dates: start: 20031001
  2. IMITREX [Concomitant]
  3. CELEXA [Concomitant]
  4. AMBIEN [Concomitant]

REACTIONS (1)
  - RETINAL HAEMORRHAGE [None]
